FAERS Safety Report 7622804-4 (Version None)
Quarter: 2011Q3

REPORT INFORMATION
  Report Type: 
  Country: None (occurrence: None)
  Receive Date: 20110720
  Receipt Date: 20101026
  Transmission Date: 20111222
  Serious: No
  Sender: FDA-Public Use
  Company Number: US-MYLANLABS-2010S1019861

PATIENT
  Age: 61 Year
  Sex: Female
  Weight: 68.04 kg

DRUGS (6)
  1. TRIAMTERENE AND HYDROCHLOROTHIAZIDE [Suspect]
     Route: 048
     Dates: start: 20101026
  2. SINGULAIR [Concomitant]
     Indication: HYPERSENSITIVITY
     Dates: start: 20050101
  3. PREMARIN [Concomitant]
     Indication: HORMONE REPLACEMENT THERAPY
     Dates: start: 19900101
  4. AMLODIPINE [Concomitant]
     Indication: BLOOD PRESSURE INCREASED
     Dates: start: 20101004
  5. ERYTHROMYCIN [Concomitant]
     Indication: NEUROPATHY PERIPHERAL
     Dates: start: 20090101
  6. TRIAMTERENE AND HYDROCHLOROTHIAZIDE [Suspect]
     Indication: BLOOD PRESSURE INCREASED
     Route: 048
     Dates: start: 20101026

REACTIONS (1)
  - DIARRHOEA [None]
